FAERS Safety Report 13294363 (Version 2)
Quarter: 2017Q1

REPORT INFORMATION
  Report Type: Other
  Country: US (occurrence: US)
  Receive Date: 20170303
  Receipt Date: 20170303
  Transmission Date: 20170428
  Serious: Yes (Other)
  Sender: FDA-Public Use
  Company Number: US-ARALEZ PHARMACEUTICALS RD INC.-ARA-TP-US-2017-51

PATIENT
  Age: 76 Year
  Sex: Female
  Weight: 71.73 kg

DRUGS (9)
  1. AMLODIPINE [Concomitant]
     Active Substance: AMLODIPINE BESYLATE
     Indication: BLOOD PRESSURE MANAGEMENT
     Route: 048
  2. METOPROLOL SUCCINATE. [Suspect]
     Active Substance: METOPROLOL SUCCINATE
     Indication: BLOOD PRESSURE MANAGEMENT
     Route: 048
     Dates: start: 20160626
  3. LASIX [Concomitant]
     Active Substance: FUROSEMIDE
     Indication: SWELLING
     Dates: end: 201701
  4. METOPROLOL. [Suspect]
     Active Substance: METOPROLOL
     Indication: BLOOD PRESSURE MANAGEMENT
     Route: 048
  5. ASPIRIN. [Concomitant]
     Active Substance: ASPIRIN
     Indication: PRODUCT USED FOR UNKNOWN INDICATION
     Route: 048
  6. BRILINTA [Suspect]
     Active Substance: TICAGRELOR
     Dates: start: 20161216
  7. XANAX [Concomitant]
     Active Substance: ALPRAZOLAM
     Indication: CEREBROVASCULAR ACCIDENT
     Route: 048
  8. BRILINTA [Suspect]
     Active Substance: TICAGRELOR
     Indication: MYOCARDIAL INFARCTION
     Route: 048
     Dates: start: 20151210
  9. PRAVASTATIN. [Concomitant]
     Active Substance: PRAVASTATIN
     Indication: HYPERCHOLESTEROLAEMIA
     Route: 048
     Dates: end: 20160603

REACTIONS (12)
  - Dizziness [Not Recovered/Not Resolved]
  - Unevaluable event [Recovered/Resolved]
  - Urinary retention [Recovered/Resolved]
  - No adverse event [Recovered/Resolved]
  - Fatigue [Recovering/Resolving]
  - Nausea [Recovered/Resolved]
  - Aneurysm [Not Recovered/Not Resolved]
  - Weight fluctuation [Not Recovered/Not Resolved]
  - Restless legs syndrome [Not Recovered/Not Resolved]
  - Dysuria [Recovered/Resolved]
  - Dysstasia [Recovered/Resolved]
  - Contusion [Not Recovered/Not Resolved]

NARRATIVE: CASE EVENT DATE: 20160116
